FAERS Safety Report 26203458 (Version 1)
Quarter: 2025Q4

REPORT INFORMATION
  Report Type: Spontaneous
  Country: US (occurrence: None)
  Receive Date: 20251223
  Receipt Date: 20251223
  Transmission Date: 20260118
  Serious: Yes (Life-Threatening, Hospitalization, Other)
  Sender: FDA-CTU
  Company Number: None

PATIENT
  Age: 56 Year
  Sex: Male
  Weight: 83.25 kg

DRUGS (4)
  1. LEVAQUIN [Suspect]
     Active Substance: LEVOFLOXACIN
     Indication: Infection
     Dates: start: 20251215, end: 20251215
  2. LISINOPRIL [Concomitant]
     Active Substance: LISINOPRIL
  3. TRAMADOL [Concomitant]
     Active Substance: TRAMADOL
  4. XANAX [Concomitant]
     Active Substance: ALPRAZOLAM

REACTIONS (35)
  - Product information content complaint [None]
  - Hypoaesthesia [None]
  - Limb discomfort [None]
  - Paraesthesia [None]
  - Feeling of body temperature change [None]
  - Abdominal distension [None]
  - Decreased appetite [None]
  - Insomnia [None]
  - Feeling abnormal [None]
  - Confusional state [None]
  - Hallucinations, mixed [None]
  - Photosensitivity reaction [None]
  - Bone pain [None]
  - Crepitations [None]
  - Nausea [None]
  - Diarrhoea [None]
  - Sleep disorder [None]
  - Tic [None]
  - Asthenia [None]
  - Flushing [None]
  - Urticaria [None]
  - Rash [None]
  - Blister [None]
  - Lacrimation increased [None]
  - Thinking abnormal [None]
  - Dry mouth [None]
  - Gait disturbance [None]
  - Weight decreased [None]
  - Feeling abnormal [None]
  - Peripheral coldness [None]
  - Tremor [None]
  - Arthralgia [None]
  - Alopecia [None]
  - Derealisation [None]
  - Product complaint [None]

NARRATIVE: CASE EVENT DATE: 20251215
